FAERS Safety Report 8168475-2 (Version None)
Quarter: 2012Q1

REPORT INFORMATION
  Report Type: 
  Country: None (occurrence: None)
  Receive Date: 20120227
  Receipt Date: 20120227
  Transmission Date: 20120608
  Serious: Yes (Hospitalization)
  Sender: FDA-Public Use
  Company Number: None

PATIENT
  Age: 66 Year
  Sex: Female
  Weight: 52.163 kg

DRUGS (7)
  1. SOTALOL HCL [Concomitant]
     Route: 048
  2. CARDURA [Concomitant]
     Route: 048
  3. PRADAXA [Suspect]
     Indication: ATRIAL FIBRILLATION
     Dosage: 150MG
     Route: 048
  4. PRADAXA [Suspect]
     Indication: CEREBROVASCULAR ACCIDENT PROPHYLAXIS
     Dosage: 150MG
     Route: 048
  5. SPIRIVA [Concomitant]
     Route: 048
  6. CRESTOR [Concomitant]
     Route: 048
  7. FLUOXETINE HCL [Concomitant]
     Route: 048

REACTIONS (3)
  - MALAISE [None]
  - ASTHENIA [None]
  - RECTAL HAEMORRHAGE [None]
